FAERS Safety Report 4982792-6 (Version None)
Quarter: 2006Q2

REPORT INFORMATION
  Report Type: 
  Country: None (occurrence: None)
  Receive Date: 20060425
  Receipt Date: 20060203
  Transmission Date: 20061013
  Serious: Yes (Death, Hospitalization, Other)
  Sender: FDA-Public Use
  Company Number: PR-MERCK-0602USA01306

PATIENT
  Age: 66 Year
  Sex: Female
  Weight: 59 kg

DRUGS (9)
  1. VIOXX [Suspect]
     Indication: RHEUMATOID ARTHRITIS
     Route: 048
     Dates: start: 20000101, end: 20020101
  2. LIPITOR [Concomitant]
     Route: 065
  3. NAPROXEN [Concomitant]
     Indication: INFLAMMATION
     Route: 065
     Dates: start: 20000911, end: 20010418
  4. NAPROXEN [Concomitant]
     Route: 048
     Dates: start: 20000911, end: 20010418
  5. PROCARDIA [Concomitant]
     Route: 048
  6. LAMISIL [Concomitant]
     Indication: FUNGAL INFECTION
     Route: 065
     Dates: start: 20010218, end: 20010818
  7. LASIX [Concomitant]
     Indication: SWELLING
     Route: 048
     Dates: start: 20001213, end: 20010519
  8. ZANTAC [Concomitant]
     Indication: ULCER
     Route: 048
     Dates: start: 20000911, end: 20010418
  9. PRINIVIL [Concomitant]
     Indication: BLOOD PRESSURE
     Route: 048
     Dates: start: 20000911, end: 20010121

REACTIONS (7)
  - ABDOMINAL PAIN UPPER [None]
  - ANOREXIA [None]
  - BLINDNESS [None]
  - CEREBROVASCULAR ACCIDENT [None]
  - GASTROOESOPHAGEAL REFLUX DISEASE [None]
  - PNEUMONIA [None]
  - RENAL FAILURE [None]
